FAERS Safety Report 9257764 (Version 1)
Quarter: 2013Q2

REPORT INFORMATION
  Report Type: Spontaneous
  Country: US (occurrence: None)
  Receive Date: 20130424
  Receipt Date: 20130424
  Transmission Date: 20140414
  Serious: No
  Sender: FDA-Public Use
  Company Number: None

PATIENT
  Age: 33 Year
  Sex: Male

DRUGS (1)
  1. ESCITALOPRAM OXALATE [Suspect]
     Indication: DEPRESSION
     Dates: start: 20130207, end: 20130228

REACTIONS (4)
  - Product substitution issue [None]
  - Drug ineffective [None]
  - Fatigue [None]
  - Irritability [None]
